FAERS Safety Report 8426854-X (Version None)
Quarter: 2012Q2

REPORT INFORMATION
  Report Type: 
  Country: None (occurrence: None)
  Receive Date: 20120611
  Receipt Date: 20120606
  Transmission Date: 20120825
  Serious: Yes (Death)
  Sender: FDA-Public Use
  Company Number: GB-ROCHE-1060525

PATIENT
  Sex: Male

DRUGS (2)
  1. LUCENTIS [Suspect]
     Route: 050
     Dates: end: 20110119
  2. LUCENTIS [Suspect]
     Indication: AGE-RELATED MACULAR DEGENERATION
     Route: 050
     Dates: start: 20081120

REACTIONS (4)
  - CORONARY ARTERY THROMBOSIS [None]
  - ARTERIOSCLEROSIS CORONARY ARTERY [None]
  - MYOCARDIAL INFARCTION [None]
  - CIRCULATORY COLLAPSE [None]
